FAERS Safety Report 6878508-9 (Version None)
Quarter: 2010Q3

REPORT INFORMATION
  Report Type: 
  Country: None (occurrence: None)
  Receive Date: 20100728
  Receipt Date: 20100720
  Transmission Date: 20110219
  Serious: Yes (Other)
  Sender: FDA-Public Use
  Company Number: FR-PFIZER INC-2010090835

PATIENT
  Age: 26 Year
  Sex: Female

DRUGS (6)
  1. SERTRALINE HYDROCHLORIDE [Suspect]
     Indication: OBSESSIVE-COMPULSIVE DISORDER
     Dosage: 50 MG, 3X/DAY
  2. SERTRALINE HYDROCHLORIDE [Suspect]
     Dosage: 50 MG, 2X/DAY
  3. SERTRALINE HYDROCHLORIDE [Suspect]
     Dosage: 50 MG, 1X/DAY
  4. SERTRALINE HYDROCHLORIDE [Suspect]
     Dosage: 25 MG, 1X/DAY
  5. SERTRALINE HYDROCHLORIDE [Suspect]
     Dosage: 25 MG, ALTERNATE DAY
  6. LEXOMIL [Concomitant]
     Dosage: 1/2 TABLET PER DAY

REACTIONS (2)
  - ABORTION SPONTANEOUS [None]
  - INFERTILITY [None]
